FAERS Safety Report 9575368 (Version 1)
Quarter: 2013Q4

REPORT INFORMATION
  Report Type: Spontaneous
  Country: US (occurrence: US)
  Receive Date: 20131001
  Receipt Date: 20131001
  Transmission Date: 20140711
  Serious: No
  Sender: FDA-Public Use
  Company Number: US-AMGEN-USASP2013001826

PATIENT
  Sex: Female
  Weight: 68.03 kg

DRUGS (8)
  1. ENBREL [Suspect]
     Indication: RHEUMATOID ARTHRITIS
     Dosage: 50 MG, QWK
     Route: 058
  2. PEPCID                             /00706001/ [Concomitant]
     Dosage: 20 MG, UNK
  3. ORTHO TRI-CYCLEN [Concomitant]
     Dosage: UNK
  4. LEVOTHYROXIN [Concomitant]
     Dosage: 100 MCG UNK
  5. VITAMIN D                          /00107901/ [Concomitant]
     Dosage: 50000 UNIT UNK
  6. METHOTREXATE [Concomitant]
     Dosage: 50 MG/2ML, UNK
  7. FOLIC ACID [Concomitant]
     Dosage: UNK
  8. TYLENOL                            /00020001/ [Concomitant]
     Dosage: 8 HR 650 MG, UNK

REACTIONS (1)
  - Urticaria [Unknown]
